FAERS Safety Report 23279581 (Version 1)
Quarter: 2023Q4

REPORT INFORMATION
  Report Type: Spontaneous
  Country: DE (occurrence: DE)
  Receive Date: 20231210
  Receipt Date: 20231210
  Transmission Date: 20240110
  Serious: Yes (Hospitalization, Other)
  Sender: FDA-Public Use
  Company Number: DE-002147023-NVSC2023DE250924

PATIENT
  Sex: Female

DRUGS (4)
  1. LETROZOLE [Suspect]
     Active Substance: LETROZOLE
     Indication: Breast cancer metastatic
     Dosage: 2.5 MILLIGRAM, ONCE A DAY
     Route: 048
     Dates: start: 20190910
  2. LETROZOLE [Suspect]
     Active Substance: LETROZOLE
     Indication: Hormone receptor positive HER2 negative breast cancer
  3. KISQALI [Suspect]
     Active Substance: RIBOCICLIB
     Indication: Breast cancer metastatic
     Dosage: 600 MILLIGRAM, ONCE A DAY (600 MG, QD (SCHEMA 21 DAYS INTAKE, 7 DAYS PAUSE))
     Route: 048
     Dates: start: 20191007, end: 20220725
  4. KISQALI [Suspect]
     Active Substance: RIBOCICLIB
     Indication: Hormone receptor positive HER2 negative breast cancer
     Dosage: 600 MILLIGRAM, ONCE A DAY (600 MG, QD, (SCHEMA 21 DAYS INTAKE, 7 DAYS PAUSE))
     Route: 048
     Dates: start: 20190910, end: 20190924

REACTIONS (2)
  - Lumbar vertebral fracture [Unknown]
  - Back pain [Unknown]

NARRATIVE: CASE EVENT DATE: 20231117
